FAERS Safety Report 19772547 (Version 3)
Quarter: 2021Q4

REPORT INFORMATION
  Report Type: Report from Study
  Country: FI (occurrence: FI)
  Receive Date: 20210901
  Receipt Date: 20211229
  Transmission Date: 20220303
  Serious: Yes (Other)
  Sender: FDA-Public Use
  Company Number: FI-MYLANLABS-2021M1057090

PATIENT
  Age: 57 Year
  Sex: Male

DRUGS (1)
  1. CLOZAPINE [Suspect]
     Active Substance: CLOZAPINE
     Indication: Product used for unknown indication
     Dosage: UNK
     Dates: end: 20210826

REACTIONS (2)
  - Neutrophil count decreased [Recovering/Resolving]
  - Living in residential institution [Unknown]

NARRATIVE: CASE EVENT DATE: 20210824
